FAERS Safety Report 8236704-2 (Version None)
Quarter: 2012Q1

REPORT INFORMATION
  Report Type: 
  Country: None (occurrence: None)
  Receive Date: 20120323
  Receipt Date: 20120312
  Transmission Date: 20120608
  Serious: Yes (Other)
  Sender: FDA-Public Use
  Company Number: 2012000048

PATIENT
  Age: 58 Year
  Sex: Female

DRUGS (3)
  1. ACEON [Suspect]
     Indication: HYPERTENSION
     Dosage: 2.5 MG, BID, ORAL, 5  MG, BID, ORAL
     Route: 048
     Dates: start: 20120201
  2. ACEON [Suspect]
     Indication: HYPERTENSION
     Dosage: 2.5 MG, BID, ORAL, 5  MG, BID, ORAL
     Route: 048
     Dates: start: 20100301
  3. ACEON [Suspect]
     Indication: HYPERTENSION
     Dosage: 2.5 MG, BID, ORAL, 5  MG, BID, ORAL
     Route: 048
     Dates: start: 20120201, end: 20120201

REACTIONS (2)
  - BLOOD PRESSURE INCREASED [None]
  - DRUG INEFFECTIVE [None]
